FAERS Safety Report 5108671-1 (Version None)
Quarter: 2006Q3

REPORT INFORMATION
  Report Type: 
  Country: None (occurrence: None)
  Receive Date: 20060915
  Receipt Date: 20060912
  Transmission Date: 20061208
  Serious: Yes (Hospitalization)
  Sender: FDA-Public Use
  Company Number: HQ1848116APR2002

PATIENT
  Age: 54 Year
  Sex: Male

DRUGS (3)
  1. EFFEXOR XR [Suspect]
     Dosage: 150 MG 1X PER 1 DAY ORAL
     Route: 048
     Dates: start: 20010716
  2. MICARDIS HCT (TELMISARTAN/HYDROCHLOROTHIAZIDE) [Concomitant]
  3. AMLODIPINE [Concomitant]

REACTIONS (3)
  - DISEASE RECURRENCE [None]
  - RESPIRATORY TRACT INFECTION [None]
  - SKIN INFECTION [None]
